FAERS Safety Report 23032201 (Version 1)
Quarter: 2023Q4

REPORT INFORMATION
  Report Type: Spontaneous
  Country: PT (occurrence: PT)
  Receive Date: 20231005
  Receipt Date: 20231005
  Transmission Date: 20240110
  Serious: Yes (Other)
  Sender: FDA-Public Use
  Company Number: None

PATIENT
  Age: 28 Year
  Sex: Male

DRUGS (2)
  1. EMTRICITABINE\TENOFOVIR DISOPROXIL [Suspect]
     Active Substance: EMTRICITABINE\TENOFOVIR DISOPROXIL
     Indication: HIV infection
     Dosage: 445 MILLIGRAM, QD (1 TABLET PER DAY)
     Route: 048
     Dates: start: 20230828, end: 20230828
  2. DARUNAVIR [Concomitant]
     Active Substance: DARUNAVIR
     Dosage: UNK
     Route: 065

REACTIONS (3)
  - Rash erythematous [Recovered/Resolved]
  - Skin exfoliation [Recovered/Resolved]
  - Product substitution issue [Unknown]

NARRATIVE: CASE EVENT DATE: 20230828
